FAERS Safety Report 9251677 (Version 2)
Quarter: 2013Q2

REPORT INFORMATION
  Report Type: Spontaneous
  Country: US (occurrence: US)
  Receive Date: 20130424
  Receipt Date: 20130516
  Transmission Date: 20140414
  Serious: Yes (Other)
  Sender: FDA-Public Use
  Company Number: US-BAYER-2013-051282

PATIENT
  Age: 24 Year
  Sex: Female

DRUGS (2)
  1. MIRENA [Suspect]
     Indication: MENORRHAGIA
     Dosage: 20 ?G/D, CONT
     Route: 015
     Dates: start: 20120517, end: 20130423
  2. MIRENA [Suspect]
     Indication: CONTRACEPTION

REACTIONS (5)
  - Abdominal pain lower [None]
  - Device expulsion [None]
  - Pain [None]
  - Genital haemorrhage [None]
  - Ovarian cyst [None]
